FAERS Safety Report 9087355 (Version 1)
Quarter: 2013Q1

REPORT INFORMATION
  Report Type: Spontaneous
  Country: FR (occurrence: FR)
  Receive Date: 20130201
  Receipt Date: 20130201
  Transmission Date: 20140127
  Serious: Yes (Hospitalization)
  Sender: FDA-Public Use
  Company Number: FR-BRISTOL-MYERS SQUIBB COMPANY-17315094

PATIENT
  Age: 94 Year
  Sex: Male

DRUGS (4)
  1. COUMADINE [Suspect]
     Dates: start: 201212, end: 20130101
  2. KARDEGIC [Suspect]
     Dates: start: 201212
  3. AMLODIPINE [Concomitant]
  4. LEVOTHYROX [Concomitant]

REACTIONS (6)
  - Muscle haemorrhage [Unknown]
  - Anaemia [Recovered/Resolved]
  - Haematuria [Recovered/Resolved]
  - Malaise [Recovered/Resolved]
  - Pleural effusion [Unknown]
  - Cholangitis [Unknown]
